FAERS Safety Report 20021915 (Version 1)
Quarter: 2021Q4

REPORT INFORMATION
  Report Type: Other
  Country: US (occurrence: US)
  Receive Date: 20211102
  Receipt Date: 20211102
  Transmission Date: 20220303
  Serious: No
  Sender: FDA-Public Use
  Company Number: US-Covis Pharma GmbH-2021COV19131

PATIENT
  Age: 36 Year
  Sex: Female

DRUGS (1)
  1. MAKENA [Suspect]
     Active Substance: HYDROXYPROGESTERONE CAPROATE
     Indication: Premature delivery
     Route: 058
     Dates: start: 20210330, end: 20210511

REACTIONS (7)
  - Peripheral swelling [Recovered/Resolved]
  - Injection site swelling [Unknown]
  - Hypersensitivity [Recovered/Resolved]
  - Injection site warmth [Recovered/Resolved]
  - Injection site mass [Recovered/Resolved]
  - Product administered at inappropriate site [Unknown]
  - Inappropriate schedule of product administration [Unknown]

NARRATIVE: CASE EVENT DATE: 20210330
